FAERS Safety Report 10263595 (Version 1)
Quarter: 2014Q2

REPORT INFORMATION
  Report Type: Spontaneous
  Country: BR (occurrence: BR)
  Receive Date: 20140626
  Receipt Date: 20140626
  Transmission Date: 20141212
  Serious: Yes (Other)
  Sender: FDA-Public Use
  Company Number: PHHY2014BR079150

PATIENT
  Age: 79 Year
  Sex: Male

DRUGS (2)
  1. FORASEQ [Suspect]
     Indication: COUGH
     Dosage: UNK UKN, UNK
     Route: 055
  2. FORASEQ [Suspect]
     Dosage: UNK UKN, UNK
     Route: 055

REACTIONS (2)
  - Cerebrovascular accident [Recovered/Resolved]
  - Lung disorder [Unknown]
